FAERS Safety Report 10013525 (Version 2)
Quarter: 2014Q1

REPORT INFORMATION
  Report Type: Spontaneous
  Country: US (occurrence: US)
  Receive Date: 20140314
  Receipt Date: 20140314
  Transmission Date: 20141002
  Serious: Yes (Other)
  Sender: FDA-Public Use
  Company Number: US-GE HEALTHCARE MEDICAL DIAGNOSTICS-OSCN-PR-0905S-0247

PATIENT
  Age: 64 Year
  Sex: Female

DRUGS (8)
  1. OMNISCAN [Suspect]
     Indication: HYPERTENSION
     Route: 065
     Dates: start: 20040615, end: 20040615
  2. OMNISCAN [Suspect]
     Route: 065
     Dates: start: 20061108, end: 20061108
  3. GADOLINIUM (UNSPECIFIED) [Suspect]
     Indication: ARTERIOSCLEROSIS
     Dates: start: 20070413, end: 20070413
  4. MAGNEVIST [Suspect]
     Indication: HYPERTENSION
     Dates: start: 20020822, end: 20020822
  5. MAGNEVIST [Suspect]
     Indication: PERIPHERAL VASCULAR DISORDER
     Dates: start: 20020903, end: 20020903
  6. MAGNEVIST [Suspect]
     Dates: start: 20040512, end: 20040512
  7. MAGNEVIST [Suspect]
     Dates: start: 20060620, end: 20060620
  8. PROHANCE [Suspect]
     Indication: PRODUCT USED FOR UNKNOWN INDICATION
     Dates: start: 20040909, end: 20040909

REACTIONS (1)
  - Nephrogenic systemic fibrosis [Not Recovered/Not Resolved]
